FAERS Safety Report 5414973-1 (Version None)
Quarter: 2007Q3

REPORT INFORMATION
  Report Type: 
  Country: None (occurrence: None)
  Receive Date: 20070813
  Receipt Date: 20070813
  Transmission Date: 20080115
  Serious: Yes (Disabling, Other)
  Sender: FDA-Public Use
  Company Number: None

PATIENT
  Age: 75 Year
  Sex: Male
  Weight: 74.8435 kg

DRUGS (1)
  1. ZYPREXA [Suspect]
     Indication: BIPOLAR DISORDER
     Dosage: 2.5 G BID ORAL
     Route: 048
     Dates: start: 20070710

REACTIONS (12)
  - ABNORMAL BEHAVIOUR [None]
  - BONE PAIN [None]
  - COGNITIVE DISORDER [None]
  - DISORIENTATION [None]
  - FALL [None]
  - GAIT DISTURBANCE [None]
  - HOSTILITY [None]
  - HYPERPHAGIA [None]
  - INCONTINENCE [None]
  - PSYCHOMOTOR HYPERACTIVITY [None]
  - SOMNAMBULISM [None]
  - SPEECH DISORDER [None]
